FAERS Safety Report 5041637-9 (Version None)
Quarter: 2006Q2

REPORT INFORMATION
  Report Type: 
  Country: None (occurrence: None)
  Receive Date: 20060601
  Receipt Date: 20060228
  Transmission Date: 20061013
  Serious: No
  Sender: FDA-Public Use
  Company Number: 2006PV009448

PATIENT
  Age: 66 Year
  Sex: Female
  Weight: 81.6475 kg

DRUGS (4)
  1. BYETTA [Suspect]
     Indication: DIABETES MELLITUS NON-INSULIN-DEPENDENT
     Dosage: 5 MCG; BID; SC
     Route: 058
     Dates: start: 20060208, end: 20060201
  2. BYETTA [Suspect]
     Indication: DIABETES MELLITUS NON-INSULIN-DEPENDENT
     Dosage: 5 MCG; BID; SC
     Route: 058
     Dates: start: 20060215, end: 20060201
  3. METFORMIN [Concomitant]
  4. AMARYL [Concomitant]

REACTIONS (12)
  - CONFUSIONAL STATE [None]
  - DIZZINESS [None]
  - DYSPHONIA [None]
  - FEELING COLD [None]
  - FEELING JITTERY [None]
  - HEART RATE INCREASED [None]
  - HYPERHIDROSIS [None]
  - IRRITABILITY [None]
  - NAUSEA [None]
  - SOMNOLENCE [None]
  - THERAPEUTIC RESPONSE UNEXPECTED [None]
  - WEIGHT DECREASED [None]
